FAERS Safety Report 9897965 (Version 1)
Quarter: 2014Q1

REPORT INFORMATION
  Report Type: Spontaneous
  Country: US (occurrence: US)
  Receive Date: 20140214
  Receipt Date: 20140214
  Transmission Date: 20141002
  Serious: Yes (Hospitalization)
  Sender: FDA-Public Use
  Company Number: US-DRREDDYS-USA/USA/14/0038103

PATIENT
  Age: 50 Year
  Sex: Female

DRUGS (5)
  1. SUMATRIPTAN SUCCINATE TABLETS [Suspect]
     Indication: MIGRAINE
     Route: 048
  2. SUMATRIPTAN [Suspect]
     Route: 058
  3. OLMESARTAN [Concomitant]
     Indication: HYPERTENSION
     Route: 065
  4. CYCLOBENZAPRINE [Concomitant]
     Indication: BACK PAIN
     Route: 065
  5. NAPROXEN [Concomitant]
     Indication: ARTHRITIS
     Route: 065

REACTIONS (1)
  - Colitis ischaemic [Recovered/Resolved]
